FAERS Safety Report 20813082 (Version 1)
Quarter: 2022Q2

REPORT INFORMATION
  Report Type: Spontaneous
  Country: US (occurrence: None)
  Receive Date: 20220510
  Receipt Date: 20220510
  Transmission Date: 20220721
  Serious: Yes (Hospitalization)
  Sender: FDA-Public Use
  Company Number: None

PATIENT
  Sex: Male

DRUGS (5)
  1. CREON [Suspect]
     Active Substance: PANCRELIPASE AMYLASE\PANCRELIPASE LIPASE\PANCRELIPASE PROTEASE
     Indication: Cystic fibrosis
     Dosage: 24000-76000 UNIT??TAKE 5 CAPSULES BY MOUTH THREE TIMES DAILY WITH MEALS. MAY ALSO TAKE 2 TO 5 CAPSUL
     Route: 048
     Dates: start: 20200519
  2. DEKAS PLUS [Concomitant]
  3. HYPERSAL [Concomitant]
  4. PULMOZYME SOL [Concomitant]
  5. TRIKAFTA [Concomitant]
     Active Substance: ELEXACAFTOR\IVACAFTOR\TEZACAFTOR

REACTIONS (1)
  - Hip surgery [None]
